FAERS Safety Report 6510093-3 (Version None)
Quarter: 2009Q4

REPORT INFORMATION
  Report Type: 
  Country: None (occurrence: None)
  Receive Date: 20091222
  Receipt Date: 20090901
  Transmission Date: 20100525
  Serious: No
  Sender: FDA-Public Use
  Company Number: US-BAUSCH-2009BL004431

PATIENT
  Age: 82 Year
  Sex: Female
  Weight: 58 kg

DRUGS (8)
  1. ALAWAY [Suspect]
     Indication: DRY EYE
     Route: 047
     Dates: start: 20090601, end: 20090831
  2. ALAWAY [Suspect]
     Indication: OFF LABEL USE
     Route: 047
     Dates: start: 20090601, end: 20090831
  3. ASPIRIN [Concomitant]
     Route: 048
  4. FOSINOPRIL SODIUM [Concomitant]
     Route: 048
  5. LIPITOR [Concomitant]
     Indication: BLOOD CHOLESTEROL INCREASED
     Route: 048
  6. SYNTHROID [Concomitant]
     Indication: THYROID DISORDER
     Route: 048
  7. CENTRUM SILVER [Concomitant]
  8. VITAMIN D [Concomitant]

REACTIONS (1)
  - EPISTAXIS [None]
